FAERS Safety Report 8910853 (Version 1)
Quarter: 2012Q4

REPORT INFORMATION
  Report Type: 
  Country: US (occurrence: US)
  Receive Date: 20121115
  Receipt Date: 20121115
  Transmission Date: 20130627
  Serious: Yes (Hospitalization, Other)
  Sender: FDA-Public Use
  Company Number: US-ELI_LILLY_AND_COMPANY-US201211001691

PATIENT
  Age: 83 None
  Sex: Female

DRUGS (10)
  1. FORTEO [Suspect]
     Indication: OSTEOPOROSIS
     Dosage: 20 ug, qd
     Dates: start: 2006
  2. ACIPHEX [Concomitant]
  3. NORVASC [Concomitant]
     Dosage: 5 mg, qd
  4. WARFARIN [Concomitant]
  5. XALATAN [Concomitant]
     Dosage: UNK
  6. COSOPT [Concomitant]
  7. CENTRUM SILVER [Concomitant]
  8. VITAMIN C [Concomitant]
  9. CALCIUM [Concomitant]
  10. VITAMIN D [Concomitant]

REACTIONS (11)
  - Pulmonary embolism [Unknown]
  - Thrombosis [Unknown]
  - Pneumonia [Unknown]
  - Pelvic fracture [Unknown]
  - Plasma cell myeloma [Not Recovered/Not Resolved]
  - Complication of device insertion [Unknown]
  - Compression fracture [Unknown]
  - Bone density abnormal [Unknown]
  - Malaise [Unknown]
  - Cough [Unknown]
  - Haemoptysis [Unknown]
